FAERS Safety Report 16793335 (Version 1)
Quarter: 2019Q3

REPORT INFORMATION
  Report Type: Report from Study
  Country: None (occurrence: BR)
  Receive Date: 20190911
  Receipt Date: 20190911
  Transmission Date: 20191005
  Serious: Yes (Other)
  Sender: FDA-Public Use
  Company Number: BR-ABBVIE-19K-020-2916722-00

PATIENT
  Sex: Female
  Weight: 53.8 kg

DRUGS (2)
  1. HUMIRA [Suspect]
     Active Substance: ADALIMUMAB
     Indication: CROHN^S DISEASE
     Route: 058
  2. CEPHALEXIN. [Concomitant]
     Active Substance: CEPHALEXIN
     Indication: PRODUCT USED FOR UNKNOWN INDICATION
     Route: 048
     Dates: start: 20190711, end: 20190717

REACTIONS (16)
  - Skin discolouration [Unknown]
  - Acne [Unknown]
  - Hypotension [Unknown]
  - Cholelithiasis [Unknown]
  - Seborrhoea [Unknown]
  - Frequent bowel movements [Unknown]
  - Malaise [Unknown]
  - Injection site discolouration [Unknown]
  - Blood cholesterol increased [Unknown]
  - Injection site pain [Unknown]
  - Musculoskeletal chest pain [Recovered/Resolved]
  - Vomiting [Unknown]
  - Post procedural complication [Unknown]
  - Anal fissure [Unknown]
  - Hypophagia [Unknown]
  - Pain [Unknown]
